FAERS Safety Report 8803191 (Version 1)
Quarter: 2012Q4

REPORT INFORMATION
  Report Type: 
  Country: US (occurrence: US)
  Receive Date: 20120924
  Receipt Date: 20120924
  Transmission Date: 20130627
  Serious: Yes (Hospitalization)
  Sender: FDA-Public Use
  Company Number: US-ELI_LILLY_AND_COMPANY-US201209003206

PATIENT
  Sex: Male

DRUGS (3)
  1. HUMALOG LISPRO [Suspect]
     Indication: TYPE 2 DIABETES MELLITUS
     Dosage: UNK, unknown
  2. HUMALOG LISPRO [Suspect]
     Dosage: UNK
     Dates: start: 1999
  3. HUMALOG LISPRO [Suspect]
     Dosage: UNK
     Route: 058

REACTIONS (7)
  - Nephrectomy [Recovered/Resolved]
  - Fall [Recovered/Resolved]
  - Drug ineffective [Unknown]
  - Blood glucose increased [Unknown]
  - Poor peripheral circulation [Unknown]
  - Heat exhaustion [Unknown]
  - Incorrect storage of drug [Unknown]
